FAERS Safety Report 7329678-X (Version None)
Quarter: 2011Q1

REPORT INFORMATION
  Report Type: 
  Country: None (occurrence: None)
  Receive Date: 20110303
  Receipt Date: 20110218
  Transmission Date: 20110831
  Serious: Yes (Hospitalization)
  Sender: FDA-Public Use
  Company Number: CN-BAYER-2011-015635

PATIENT
  Age: 70 Year
  Sex: Female

DRUGS (1)
  1. ASPIRIN [Suspect]
     Indication: PLATELET AGGREGATION INHIBITION
     Dosage: UNK
     Dates: start: 20090901, end: 20091010

REACTIONS (1)
  - THROMBOCYTOPENIA [None]
